FAERS Safety Report 4579859-3 (Version None)
Quarter: 2005Q1

REPORT INFORMATION
  Report Type: 
  Country: None (occurrence: None)
  Receive Date: 20050214
  Receipt Date: 20050202
  Transmission Date: 20050727
  Serious: Yes (Hospitalization)
  Sender: FDA-Public Use
  Company Number: 200510406FR

PATIENT
  Age: 22 Month
  Sex: Male

DRUGS (3)
  1. LASILIX [Suspect]
     Route: 048
     Dates: start: 20030103
  2. HYDROCORTISONE ^ROUSSEL^ [Suspect]
     Route: 048
  3. ALDACTONE [Suspect]
     Route: 048
     Dates: start: 20040713

REACTIONS (1)
  - PATHOLOGICAL FRACTURE [None]
